FAERS Safety Report 12983098 (Version 1)
Quarter: 2016Q4

REPORT INFORMATION
  Report Type: Spontaneous
  Country: US (occurrence: US)
  Receive Date: 20161129
  Receipt Date: 20161129
  Transmission Date: 20170207
  Serious: No
  Sender: FDA-Public Use
  Company Number: US-MALLINCKRODT-T201602912

PATIENT
  Age: 73 Year
  Sex: Female
  Weight: 91 kg

DRUGS (4)
  1. FENTANYL ACTAVIS [Concomitant]
     Active Substance: FENTANYL
     Indication: NEURALGIA
     Dosage: 25 MG/HR PATCH
     Dates: end: 201606
  2. FENTANYL TRANSDERMAL SYSTEM [Suspect]
     Active Substance: FENTANYL
     Indication: NEURALGIA
     Dosage: 50 MCG/HR EVERY 72 HOURS
     Route: 062
     Dates: start: 20160625
  3. GABAPENTIN. [Concomitant]
     Active Substance: GABAPENTIN
  4. OXYCODONE [Concomitant]
     Active Substance: OXYCODONE

REACTIONS (4)
  - Drug ineffective [Not Recovered/Not Resolved]
  - Product adhesion issue [Not Recovered/Not Resolved]
  - Drug effect decreased [Not Recovered/Not Resolved]
  - Pain [Not Recovered/Not Resolved]

NARRATIVE: CASE EVENT DATE: 201606
